FAERS Safety Report 8611099-0 (Version None)
Quarter: 2012Q3

REPORT INFORMATION
  Report Type: 
  Country: None (occurrence: None)
  Receive Date: 20120808
  Receipt Date: 20120727
  Transmission Date: 20120928
  Serious: Yes (Hospitalization)
  Sender: FDA-Public Use
  Company Number: DSJ-2012-13595

PATIENT
  Age: 78 Year
  Sex: Male
  Weight: 58.1 kg

DRUGS (7)
  1. NOVOLOG [Concomitant]
  2. NATEGLINIDE [Concomitant]
  3. AVAPRO [Concomitant]
  4. LASIX [Concomitant]
  5. OLMESARTAN MEDOXOMIL [Suspect]
     Indication: ESSENTIAL HYPERTENSION
     Dosage: 40 MG, PER ORAL
     Route: 048
     Dates: start: 20100601, end: 20111228
  6. CARVEDILOL [Concomitant]
  7. BASEN OD (VOGLIBOSE) [Concomitant]

REACTIONS (2)
  - SICK SINUS SYNDROME [None]
  - HYPERKALAEMIA [None]
